FAERS Safety Report 8853266 (Version 6)
Quarter: 2013Q2

REPORT INFORMATION
  Report Type: Report from Study
  Country: FR (occurrence: FR)
  Receive Date: 20121022
  Receipt Date: 20130604
  Transmission Date: 20140414
  Serious: Yes (Hospitalization)
  Sender: FDA-Public Use
  Company Number: FR-NOVOPROD-362283

PATIENT
  Age: 72 Year
  Sex: Male
  Weight: 85 kg

DRUGS (18)
  1. LIRAGLUTIDE FLEXPEN [Suspect]
     Indication: TYPE 2 DIABETES MELLITUS
     Dosage: 1.8 MG, QD
     Route: 058
     Dates: start: 20120801
  2. LANTUS [Concomitant]
     Indication: DIABETES MELLITUS
     Dosage: 50 IU, QD
     Route: 058
     Dates: start: 201104, end: 20120831
  3. LANTUS [Concomitant]
     Dosage: 42 IU, QD
     Route: 030
     Dates: start: 20120901, end: 20120904
  4. LANTUS [Concomitant]
     Dosage: 40 IU, QD
     Route: 030
     Dates: start: 20120905, end: 20120921
  5. LANTUS [Concomitant]
     Dosage: 38 IU,QD
     Route: 030
     Dates: start: 20120922
  6. LANTUS [Concomitant]
     Dosage: UNK
     Dates: start: 20120922
  7. VICTOZA [Concomitant]
     Indication: DIABETES MELLITUS
     Dosage: 1.8 MG, QD
     Route: 058
     Dates: start: 20130131
  8. ELISOR [Concomitant]
     Indication: DYSLIPIDAEMIA
     Dosage: 20 MG, QD
     Route: 048
     Dates: start: 2005
  9. ADANCOR [Concomitant]
     Indication: CEREBROVASCULAR ACCIDENT
     Dosage: 40 MG, QD
     Route: 048
     Dates: start: 20110616
  10. PLAVIX [Concomitant]
     Indication: CEREBROVASCULAR ACCIDENT
     Dosage: 75 MG, QD
     Route: 048
     Dates: start: 2005
  11. LEVOTHYROX [Concomitant]
     Indication: THYROIDECTOMY
     Dosage: 125 ?G, QD
     Route: 048
     Dates: start: 2004
  12. PROCORALAN [Concomitant]
     Indication: HYPERTENSION
     Dosage: 10 MG, QD
     Route: 048
     Dates: start: 20120809
  13. BISOPROLOL [Concomitant]
     Indication: CORONARY ARTERY INSUFFICIENCY
     Dosage: 5 MG, QD
     Route: 048
     Dates: start: 20110616, end: 20120808
  14. TRIATEC                            /00116401/ [Concomitant]
     Indication: HYPERTENSION
     Dosage: 1.25 MG, QD
     Route: 048
     Dates: start: 201202, end: 20120905
  15. TRIATEC COMP [Concomitant]
     Indication: HYPERTENSION
     Dosage: 12.5 MG, QD
     Route: 048
     Dates: start: 201002, end: 20120905
  16. IRBESARTAN [Concomitant]
     Indication: HYPERTENSION
     Dosage: 300 MG, QD
     Route: 048
  17. HYDROCHLOROTHIAZIDE [Concomitant]
     Indication: HYPERTENSION
     Dosage: 12.5 MG, QD
     Route: 048
     Dates: start: 20120906
  18. MOPRAL                             /00661201/ [Concomitant]
     Indication: PROPHYLAXIS AGAINST GASTROINTESTINAL ULCER
     Dosage: 20 MG, QD
     Route: 048
     Dates: start: 20130110

REACTIONS (1)
  - Syncope [Recovered/Resolved]
